FAERS Safety Report 20230978 (Version 1)
Quarter: 2021Q4

REPORT INFORMATION
  Report Type: Spontaneous
  Country: CN (occurrence: None)
  Receive Date: 20211227
  Receipt Date: 20211227
  Transmission Date: 20220303
  Serious: Yes (Other)
  Sender: FDA-Public Use
  Company Number: CN-ROCHE-2982429

PATIENT
  Age: 63 Year
  Sex: Female
  Weight: 57.3 kg

DRUGS (2)
  1. XELODA [Suspect]
     Active Substance: CAPECITABINE
     Indication: Colon cancer
     Route: 048
     Dates: start: 20210925, end: 20211029
  2. OXALIPLATIN [Concomitant]
     Active Substance: OXALIPLATIN
     Indication: Colon cancer
     Route: 041
     Dates: start: 20210925, end: 20211029

REACTIONS (3)
  - Macule [Recovering/Resolving]
  - Blister [Recovering/Resolving]
  - Asthenia [Recovering/Resolving]
